FAERS Safety Report 20221223 (Version 2)
Quarter: 2024Q4

REPORT INFORMATION
  Report Type: Other
  Country: CA (occurrence: CA)
  Receive Date: 20211223
  Receipt Date: 20241004
  Transmission Date: 20250114
  Serious: Yes (Hospitalization, Other)
  Sender: APOTEX
  Company Number: CA-APOTEX-2021AP046796

PATIENT
  Age: 62 Year
  Sex: Female

DRUGS (2)
  1. MOXIFLOXACIN [Suspect]
     Active Substance: MOXIFLOXACIN
     Indication: Postoperative wound infection
     Dosage: UNK
     Route: 065
  2. MEPOLIZUMAB [Suspect]
     Active Substance: MEPOLIZUMAB
     Indication: Asthma
     Dosage: 100 MILLIGRAM, 1 EVERY 4 WEEKS
     Route: 058

REACTIONS (6)
  - Hip surgery [Unknown]
  - Postoperative wound infection [Unknown]
  - Product dose omission issue [Unknown]
  - Infection [Unknown]
  - Cough [Unknown]
  - Drug hypersensitivity [Unknown]
